FAERS Safety Report 7603241-5 (Version None)
Quarter: 2011Q3

REPORT INFORMATION
  Report Type: 
  Country: None (occurrence: None)
  Receive Date: 20110712
  Receipt Date: 20110707
  Transmission Date: 20111222
  Serious: Yes (Other)
  Sender: FDA-Public Use
  Company Number: IT-PFIZER INC-2011153720

PATIENT
  Age: 45 Year
  Sex: Male

DRUGS (2)
  1. DOXYCYCLINE HYCLATE [Suspect]
     Dosage: 100 MG, 1X/DAY
     Route: 048
  2. DOXYCYCLINE HYCLATE [Suspect]
     Indication: ROSACEA
     Dosage: 100 MG, 2X/DAY
     Route: 048

REACTIONS (3)
  - LEUKOPENIA [None]
  - LYMPHADENOPATHY [None]
  - LYMPHOCYTOSIS [None]
